FAERS Safety Report 8810459 (Version 2)
Quarter: 2012Q4

REPORT INFORMATION
  Report Type: 
  Country: DE (occurrence: DE)
  Receive Date: 20120927
  Receipt Date: 20121207
  Transmission Date: 20130627
  Serious: Yes (Life-Threatening, Hospitalization)
  Sender: FDA-Public Use
  Company Number: DE-BRISTOL-MYERS SQUIBB COMPANY-16969396

PATIENT
  Age: 53 Year
  Sex: Female
  Weight: 98 kg

DRUGS (4)
  1. PACLITAXEL [Suspect]
     Indication: NON-SMALL CELL LUNG CANCER
     Route: 042
     Dates: start: 20120509, end: 20120509
  2. FORTECORTIN [Concomitant]
     Indication: PREMEDICATION
  3. FENISTIL [Concomitant]
     Indication: PREMEDICATION
     Dosage: 1DF:1ampoule
  4. RANITIDINE [Concomitant]
     Indication: PREMEDICATION

REACTIONS (5)
  - Coma [Recovered/Resolved]
  - Convulsion [Recovered/Resolved]
  - Hypersensitivity [Recovered/Resolved]
  - Cyanosis [Recovered/Resolved]
  - Dyspnoea [Recovered/Resolved]
